FAERS Safety Report 13780790 (Version 2)
Quarter: 2017Q3

REPORT INFORMATION
  Report Type: Spontaneous
  Country: US (occurrence: US)
  Receive Date: 20170724
  Receipt Date: 20170727
  Transmission Date: 20171127
  Serious: No
  Sender: FDA-Public Use
  Company Number: US-009507513-1707USA000238

PATIENT
  Sex: Female

DRUGS (1)
  1. NUVARING [Suspect]
     Active Substance: ETHINYL ESTRADIOL\ETONOGESTREL
     Dosage: 1 DF, QM (0.15/0.12 MG, IN PLACE CONTINUOUSLY FOR THREE WEEKS, FOLLOWED BY A ONE-WEEK RING-FREE)
     Route: 067

REACTIONS (4)
  - Product quality issue [Unknown]
  - No adverse event [Unknown]
  - Device breakage [Unknown]
  - Drug dose omission [Unknown]
